FAERS Safety Report 8111591-1 (Version None)
Quarter: 2012Q1

REPORT INFORMATION
  Report Type: 
  Country: None (occurrence: None)
  Receive Date: 20120202
  Receipt Date: 20120202
  Transmission Date: 20120608
  Serious: Yes (Other)
  Sender: FDA-Public Use
  Company Number: None

PATIENT
  Sex: Male
  Weight: 48.6 kg

DRUGS (3)
  1. CLOFAZIMINE 50MG CAPSULE [Suspect]
     Indication: TUBERCULOSIS
     Dosage: 100MG DAILY ORAL 200 MG - 12/21, 12/25 TO 12/27
     Route: 048
     Dates: start: 20111228, end: 20120122
  2. CLOFAZIMINE 50MG CAPSULE [Suspect]
     Indication: TUBERCULOSIS
     Dosage: 100MG DAILY ORAL 200 MG - 12/21, 12/25 TO 12/27
     Route: 048
     Dates: start: 20111221
  3. CLOFAZIMINE 50MG CAPSULE [Suspect]
     Indication: TUBERCULOSIS
     Dosage: 100MG DAILY ORAL 200 MG - 12/21, 12/25 TO 12/27
     Route: 048
     Dates: start: 20111225, end: 20111227

REACTIONS (7)
  - FATIGUE [None]
  - DIARRHOEA [None]
  - DECREASED APPETITE [None]
  - DYSPEPSIA [None]
  - HEADACHE [None]
  - NAUSEA [None]
  - HEART RATE IRREGULAR [None]
